FAERS Safety Report 14174649 (Version 16)
Quarter: 2019Q2

REPORT INFORMATION
  Report Type: Report from Study
  Country: ES (occurrence: ES)
  Receive Date: 20171109
  Receipt Date: 20190430
  Transmission Date: 20190711
  Serious: Yes (Life-Threatening, Other)
  Sender: FDA-Public Use
  Company Number: ES-ROCHE-2020706

PATIENT
  Age: 67 Year
  Sex: Female
  Weight: 93 kg

DRUGS (16)
  1. COBIMETINIB. [Suspect]
     Active Substance: COBIMETINIB
     Indication: COLORECTAL CANCER METASTATIC
     Dosage: 03/NOV/2017: DATE OF MOST RECENT DOSE PRIOR TO SAE?60MG: DOSE OF LAST STUDY DRUG ADMINISTERED
     Route: 048
     Dates: start: 20171020
  2. 5-FLUOROURACIL [FLUOROURACIL] [Suspect]
     Active Substance: FLUOROURACIL
     Route: 042
     Dates: start: 20170830, end: 20170913
  3. TORASEMIDE [Concomitant]
     Active Substance: TORSEMIDE
     Indication: OEDEMA PERIPHERAL
     Route: 065
     Dates: start: 20170818
  4. TORASEMIDE [Concomitant]
     Active Substance: TORSEMIDE
     Route: 065
     Dates: start: 20171101
  5. FOLINIC ACID [Suspect]
     Active Substance: LEUCOVORIN
     Indication: COLORECTAL CANCER METASTATIC
     Dosage: 400 MG/M^2
     Route: 042
     Dates: start: 20170531, end: 20170816
  6. 5-FLUOROURACIL [FLUOROURACIL] [Suspect]
     Active Substance: FLUOROURACIL
     Indication: COLORECTAL CANCER METASTATIC
     Dosage: 1600-2400 MG/M^2 5-FU VIA 46-HOUR IV INFUSION
     Route: 042
     Dates: start: 20170531, end: 20170816
  7. OXALIPLATIN. [Suspect]
     Active Substance: OXALIPLATIN
     Indication: COLORECTAL CANCER METASTATIC
     Route: 042
     Dates: start: 20170531, end: 20170816
  8. TORASEMIDE [Concomitant]
     Active Substance: TORSEMIDE
     Indication: FACE OEDEMA
     Route: 065
     Dates: start: 20171028
  9. ATEZOLIZUMAB. [Suspect]
     Active Substance: ATEZOLIZUMAB
     Indication: COLORECTAL CANCER METASTATIC
     Dosage: 20/OCT/2017: DATE OF MOST RECENT DOSE PRIOR TO SAE ?800MG: DOSE OF LAST STUDY DRUG ADMINISTERED
     Route: 042
     Dates: start: 20171020
  10. BEVACIZUMAB. [Suspect]
     Active Substance: BEVACIZUMAB
     Indication: COLORECTAL CANCER METASTATIC
     Route: 042
     Dates: start: 20170531, end: 20170913
  11. ENALAPRIL [Concomitant]
     Active Substance: ENALAPRIL
     Indication: HYPERTENSIVE CRISIS
     Route: 065
     Dates: start: 20171030, end: 20171031
  12. FOLINIC ACID [Suspect]
     Active Substance: LEUCOVORIN
     Route: 042
     Dates: start: 20170830, end: 20170913
  13. ESIDREX [Concomitant]
     Active Substance: HYDROCHLOROTHIAZIDE
     Route: 065
     Dates: start: 2011, end: 20170817
  14. ATENOLOL. [Concomitant]
     Active Substance: ATENOLOL
     Route: 065
     Dates: start: 20171101
  15. ONDANSETRON [Concomitant]
     Active Substance: ONDANSETRON
     Indication: NAUSEA
     Route: 065
     Dates: start: 20170523, end: 20170830
  16. PARIET [Concomitant]
     Active Substance: RABEPRAZOLE SODIUM
     Route: 065

REACTIONS (3)
  - Blood creatine phosphokinase increased [Recovered/Resolved]
  - Hypertensive crisis [Recovered/Resolved]
  - Neutropenia [Recovered/Resolved]

NARRATIVE: CASE EVENT DATE: 20171030
